FAERS Safety Report 17143292 (Version 1)
Quarter: 2019Q4

REPORT INFORMATION
  Report Type: Spontaneous
  Country: US (occurrence: US)
  Receive Date: 20191211
  Receipt Date: 20191211
  Transmission Date: 20200122
  Serious: Yes (Other)
  Sender: FDA-Public Use
  Company Number: US-AMERICAN REGENT INC-20190097

PATIENT
  Age: 8 Year
  Sex: Female

DRUGS (13)
  1. LANSOPRAZOLE. [Concomitant]
     Active Substance: LANSOPRAZOLE
     Dosage: 30 MG TWICE DAILY
     Route: 048
  2. ALBUTEROL. [Concomitant]
     Active Substance: ALBUTEROL
     Dosage: 2 PUFFS AS NEEDED EVERY 4-6 H
     Route: 065
  3. GUANFACINE. [Concomitant]
     Active Substance: GUANFACINE
     Indication: HYPERTENSION
     Dosage: 1 MG THREE TIMES DAILY
     Route: 048
  4. VENOFER [Suspect]
     Active Substance: IRON SUCROSE
     Dosage: 245 MG/250 ML NS (7MG/KG) INFUSED OVER 90 MINUTES
     Route: 042
     Dates: start: 20190104, end: 20190104
  5. VENOFER [Suspect]
     Active Substance: IRON SUCROSE
  6. GABAPENTIN. [Concomitant]
     Active Substance: GABAPENTIN
     Indication: RESTLESS LEGS SYNDROME
     Dosage: 1 TO 6 ML AT BEDTIME
     Route: 048
  7. FEXOFENADINE [Concomitant]
     Active Substance: FEXOFENADINE HYDROCHLORIDE
     Dosage: 5 ML ONCE DAILY
     Route: 048
  8. FLUTICASONE. [Concomitant]
     Active Substance: FLUTICASONE
     Indication: ASTHMA
     Dosage: 2 PUFFS TWICE DAILY
     Route: 065
  9. MAGNESIUM HYDROXIDE. [Concomitant]
     Active Substance: MAGNESIUM HYDROXIDE
     Dosage: 2.4 G/30 ML ONCE DAILY
     Route: 065
  10. OLOPATADINE OPHTHALMIC [Concomitant]
     Dosage: 1 DROP IN EACH EYE DAILY PRN
  11. VENOFER [Suspect]
     Active Substance: IRON SUCROSE
  12. SENNA [Concomitant]
     Active Substance: SENNA LEAF\SENNOSIDES\SENNOSIDES A AND B
     Dosage: 45 MG CHEWED DAILY
     Route: 048
  13. ENALAPRIL [Concomitant]
     Active Substance: ENALAPRIL
     Indication: HYPERTENSION
     Dosage: 2.5 ML ONCE DAILY
     Route: 048

REACTIONS (18)
  - Gastritis [Recovered/Resolved]
  - Product use in unapproved indication [Unknown]
  - Abdominal discomfort [Recovered/Resolved]
  - Hypotension [Recovered/Resolved]
  - Urticaria [Unknown]
  - Product preparation issue [Unknown]
  - Erythema [Recovered/Resolved]
  - Discomfort [Recovered/Resolved]
  - Tachycardia [Recovered/Resolved]
  - Nausea [Recovered/Resolved]
  - Vomiting [Recovered/Resolved]
  - Incorrect product administration duration [Unknown]
  - Somnolence [Recovered/Resolved]
  - Cough [Recovered/Resolved]
  - Incorrect dose administered [Unknown]
  - Abdominal pain [Recovered/Resolved]
  - Flushing [Recovered/Resolved]
  - Livedo reticularis [Recovered/Resolved]

NARRATIVE: CASE EVENT DATE: 20190104
